FAERS Safety Report 13578399 (Version 1)
Quarter: 2017Q2

REPORT INFORMATION
  Report Type: Spontaneous
  Country: US (occurrence: US)
  Receive Date: 20170524
  Receipt Date: 20170524
  Transmission Date: 20170830
  Serious: Yes (Other)
  Sender: FDA-Public Use
  Company Number: US-BAYER-2017-092588

PATIENT
  Age: 59 Year
  Sex: Female

DRUGS (1)
  1. BETASERON [Suspect]
     Active Substance: INTERFERON BETA-1B
     Indication: MULTIPLE SCLEROSIS
     Dosage: 1 ML, UNK
     Dates: start: 2007

REACTIONS (7)
  - Multiple sclerosis relapse [None]
  - Lethargy [None]
  - Post-traumatic neck syndrome [None]
  - Paraesthesia [None]
  - Road traffic accident [None]
  - Vision blurred [None]
  - Injection site atrophy [None]

NARRATIVE: CASE EVENT DATE: 201704
